FAERS Safety Report 14765251 (Version 1)
Quarter: 2018Q2

REPORT INFORMATION
  Report Type: Spontaneous
  Country: US (occurrence: US)
  Receive Date: 20180416
  Receipt Date: 20180416
  Transmission Date: 20180711
  Serious: Yes (Other)
  Sender: FDA-Public Use
  Company Number: US-TAKEDA-2018TUS005773

PATIENT
  Sex: Female

DRUGS (5)
  1. ALUNBRIG [Suspect]
     Active Substance: BRIGATINIB
     Dosage: 150 MG, UNK
     Route: 048
  2. HYDROCODONE [Suspect]
     Active Substance: HYDROCODONE
     Indication: PAIN
     Dosage: UNK
     Route: 065
  3. ALUNBRIG [Suspect]
     Active Substance: BRIGATINIB
     Dosage: 180 MG, UNK
     Route: 048
     Dates: start: 201712
  4. ALUNBRIG [Suspect]
     Active Substance: BRIGATINIB
     Indication: LUNG NEOPLASM MALIGNANT
     Dosage: 90 MG, UNK
     Route: 048
     Dates: start: 20170801
  5. ALUNBRIG [Suspect]
     Active Substance: BRIGATINIB
     Dosage: 180 MG, UNK
     Route: 048

REACTIONS (8)
  - Neoplasm progression [Unknown]
  - Arthritis [Unknown]
  - Back pain [Unknown]
  - Neuropathy peripheral [Unknown]
  - Pain [Unknown]
  - Headache [Unknown]
  - Constipation [Unknown]
  - Weight abnormal [Unknown]
